FAERS Safety Report 7751852-9 (Version None)
Quarter: 2011Q3

REPORT INFORMATION
  Report Type: 
  Country: None (occurrence: None)
  Receive Date: 20110914
  Receipt Date: 20110914
  Transmission Date: 20111222
  Serious: Yes (Hospitalization)
  Sender: FDA-Public Use
  Company Number: None

PATIENT
  Age: 52 Year
  Sex: Male
  Weight: 85 kg

DRUGS (1)
  1. LISINOPRIL [Suspect]
     Indication: HYPERTENSION
     Dosage: 40 MG EVERY DAY PO
     Route: 048
     Dates: start: 20091229, end: 20110628

REACTIONS (6)
  - LOCAL SWELLING [None]
  - ANGIOEDEMA [None]
  - SWOLLEN TONGUE [None]
  - TENDERNESS [None]
  - THROAT TIGHTNESS [None]
  - DYSPHAGIA [None]
